FAERS Safety Report 4350390-3 (Version None)
Quarter: 2004Q2

REPORT INFORMATION
  Report Type: 
  Country: None (occurrence: None)
  Receive Date: 20040430
  Receipt Date: 20040430
  Transmission Date: 20050107
  Serious: Yes (Hospitalization)
  Sender: FDA-Public Use
  Company Number: None

PATIENT
  Age: 24 Year
  Sex: Female
  Weight: 67.1324 kg

DRUGS (4)
  1. ZELNORM [Suspect]
     Indication: ABDOMINAL DISTENSION
     Dosage: 3 MG 1X -1/2- ORAL
     Route: 048
     Dates: start: 20040218, end: 20040221
  2. ZELNORM [Suspect]
     Indication: DIARRHOEA
     Dosage: 3 MG 1X -1/2- ORAL
     Route: 048
     Dates: start: 20040218, end: 20040221
  3. ZELNORM [Suspect]
     Indication: IRRITABLE BOWEL SYNDROME
     Dosage: 3 MG 1X -1/2- ORAL
     Route: 048
     Dates: start: 20040218, end: 20040221
  4. ZELNORM [Suspect]
     Indication: PAIN
     Dosage: 3 MG 1X -1/2- ORAL
     Route: 048
     Dates: start: 20040218, end: 20040221

REACTIONS (4)
  - DEHYDRATION [None]
  - DIARRHOEA [None]
  - MIGRAINE [None]
  - VOMITING [None]
